FAERS Safety Report 8508397-8 (Version None)
Quarter: 2012Q3

REPORT INFORMATION
  Report Type: 
  Country: None (occurrence: None)
  Receive Date: 20120713
  Receipt Date: 20120711
  Transmission Date: 20120928
  Serious: Yes (Death, Other)
  Sender: FDA-Public Use
  Company Number: PHHY2011CA10664

PATIENT
  Sex: Male

DRUGS (4)
  1. SANDOSTATIN LAR [Suspect]
     Indication: CARCINOID SYNDROME
     Dosage: 30 MG, QMO
     Route: 030
     Dates: start: 20101126
  2. SANDOSTATIN LAR [Suspect]
     Dosage: 30 MG EVERY 4 WEEKS
     Route: 030
     Dates: end: 20111004
  3. SANDOSTATIN LAR [Suspect]
     Dosage: 20 MG, QMO
     Route: 030
     Dates: start: 20101201
  4. PARADEX [Concomitant]
     Dosage: 150 MG, BID
     Dates: start: 20110112

REACTIONS (4)
  - DIARRHOEA [None]
  - METASTASES TO BONE [None]
  - TACHYCARDIA [None]
  - DEATH [None]
